FAERS Safety Report 6047567-8 (Version None)
Quarter: 2009Q1

REPORT INFORMATION
  Report Type: 
  Country: None (occurrence: None)
  Receive Date: 20090123
  Receipt Date: 20090116
  Transmission Date: 20090719
  Serious: Yes (Other)
  Sender: FDA-Public Use
  Company Number: DE-RANBAXY-2009RR-20600

PATIENT
  Age: 78 Year
  Sex: Female
  Weight: 69.5 kg

DRUGS (1)
  1. AMLODIPINE [Suspect]
     Indication: HYPERTENSION
     Dosage: 5 MG, QD
     Route: 048
     Dates: start: 20081210

REACTIONS (3)
  - OEDEMA PERIPHERAL [None]
  - TENDERNESS [None]
  - VASODILATATION [None]
